FAERS Safety Report 4673310-0 (Version None)
Quarter: 2005Q2

REPORT INFORMATION
  Report Type: 
  Country: None (occurrence: None)
  Receive Date: 20050525
  Receipt Date: 20050201
  Transmission Date: 20051028
  Serious: Yes (Other)
  Sender: FDA-Public Use
  Company Number: US-BRISTOL-MYERS SQUIBB COMPANY-12845400

PATIENT
  Age: 1 Day
  Sex: Male
  Weight: 2 kg

DRUGS (4)
  1. ZERIT [Suspect]
     Indication: HIV INFECTION
     Dosage: EXPOSURE BEGAN AT CONCEPTION, DOSE DECREASED TO 30 MG EVERY 12 HOURS ON 17-AUG-2004
     Route: 064
     Dates: end: 20050319
  2. EPIVIR [Suspect]
     Indication: HIV INFECTION
     Dosage: EXPOSURE BEGAN AT CONCEPTION
     Route: 064
     Dates: end: 20050319
  3. KALETRA [Suspect]
     Indication: HIV INFECTION
     Dosage: EXPOSURE BEGAN AT CONCEPTION
     Route: 064
     Dates: end: 20050319
  4. SPORANOX [Suspect]
     Dosage: EXPOSURE IN FIRST TRIMESTER
     Route: 064

REACTIONS (5)
  - BRAIN MALFORMATION [None]
  - CEREBRAL VENTRICLE DILATATION [None]
  - CONGENITAL GENITAL MALFORMATION [None]
  - MICROCEPHALY [None]
  - UMBILICAL CORD VASCULAR DISORDER [None]
